FAERS Safety Report 16456301 (Version 1)
Quarter: 2019Q3

REPORT INFORMATION
  Report Type: Spontaneous
  Country: US (occurrence: US)
  Receive Date: 20190619
  Receipt Date: 20190619
  Transmission Date: 20191004
  Serious: Yes (Hospitalization)
  Sender: FDA-Public Use
  Company Number: None

PATIENT
  Sex: Male

DRUGS (8)
  1. FERROUS SULF, FLUTICASONE, GLUCOS/CHOND [Concomitant]
  2. SPIRIVA, VITAMIN B [Concomitant]
  3. MAGIC BULLET, MAGNESIUM-OX, OMEPRAZOLE [Concomitant]
  4. CALCITRIOL, CHOLECAL CIFE, CLOTRIM/BETA [Concomitant]
  5. POTASSIUM, SIMVASTATIN [Concomitant]
  6. HUMIRA [Suspect]
     Active Substance: ADALIMUMAB
     Indication: CROHN^S DISEASE
     Dosage: ?          OTHER FREQUENCY:Q 14 DAYS;?
     Route: 058
     Dates: start: 20170712
  7. HYDROCO/APAP, LIDOCAINE, LISINOPRIL [Concomitant]
  8. ADVAIR, BENZOCAINE, BUPROPION [Concomitant]

REACTIONS (3)
  - Blood glucose decreased [None]
  - Product dose omission [None]
  - Muscular weakness [None]
